FAERS Safety Report 12349935 (Version 1)
Quarter: 2016Q2

REPORT INFORMATION
  Report Type: Spontaneous
  Country: US (occurrence: None)
  Receive Date: 20160509
  Receipt Date: 20160509
  Transmission Date: 20160815
  Serious: Yes (Disabling)
  Sender: FDA-Public Use
  Company Number: None

PATIENT
  Age: 52 Year
  Sex: Female
  Weight: 127.01 kg

DRUGS (7)
  1. XELJANZ [Suspect]
     Active Substance: TOFACITINIB CITRATE
     Indication: RHEUMATOID ARTHRITIS
     Route: 048
     Dates: start: 20141030, end: 20160210
  2. DULOXITINE [Concomitant]
  3. MULTIVITAMIN [Concomitant]
     Active Substance: VITAMINS
  4. ORENCIA [Concomitant]
     Active Substance: ABATACEPT
  5. SULFASALIZINE [Concomitant]
  6. VITAMIN D [Concomitant]
     Active Substance: CHOLECALCIFEROL
  7. LEFLUNOMIDE. [Concomitant]
     Active Substance: LEFLUNOMIDE

REACTIONS (6)
  - Anaemia [None]
  - Fibromyalgia [None]
  - Rheumatoid arthritis [None]
  - Fatigue [None]
  - Muscle spasms [None]
  - Blood calcium decreased [None]

NARRATIVE: CASE EVENT DATE: 20160210
